FAERS Safety Report 17743049 (Version 1)
Quarter: 2020Q2

REPORT INFORMATION
  Report Type: Spontaneous
  Country: DK (occurrence: DK)
  Receive Date: 20200504
  Receipt Date: 20200504
  Transmission Date: 20200714
  Serious: Yes (Hospitalization)
  Sender: FDA-Public Use
  Company Number: DK-MYLANLABS-2020M1043251

PATIENT
  Age: 67 Year
  Sex: Male

DRUGS (3)
  1. ISOPTIN SR [Suspect]
     Active Substance: VERAPAMIL HYDROCHLORIDE
     Indication: ARRHYTHMIA
     Dosage: STYRKE: 120 MG.
     Route: 048
     Dates: start: 20180801, end: 20180926
  2. XARELTO [Concomitant]
     Active Substance: RIVAROXABAN
     Indication: THROMBOSIS PROPHYLAXIS
     Dosage: STYRKE: 20 MG.
     Route: 048
     Dates: start: 20150305
  3. DIGOXIN. [Concomitant]
     Active Substance: DIGOXIN
     Indication: ARRHYTHMIA
     Dosage: STYRKE: 250 MIKROGRAM
     Route: 048
     Dates: start: 20180619, end: 20190123

REACTIONS (2)
  - Diverticulitis [Unknown]
  - Constipation [Recovered/Resolved]

NARRATIVE: CASE EVENT DATE: 2018
